FAERS Safety Report 8616722-2 (Version None)
Quarter: 2012Q3

REPORT INFORMATION
  Report Type: 
  Country: None (occurrence: None)
  Receive Date: 20120823
  Receipt Date: 20120809
  Transmission Date: 20120928
  Serious: Yes (Hospitalization, Other)
  Sender: FDA-Public Use
  Company Number: GB-ROCHE-1100095

PATIENT
  Age: 60 Year
  Sex: Female

DRUGS (4)
  1. CYCLOPHOSPHAMIDE [Suspect]
     Indication: CHRONIC LYMPHOCYTIC LEUKAEMIA
  2. FLUDARA [Suspect]
     Indication: CHRONIC LYMPHOCYTIC LEUKAEMIA
  3. MYCOPHENOLATE MEFETIL [Suspect]
     Indication: GRAFT VERSUS HOST DISEASE
  4. CAMPATH-1 [Suspect]
     Indication: CHRONIC LYMPHOCYTIC LEUKAEMIA

REACTIONS (4)
  - NIGHT SWEATS [None]
  - ENDOPHTHALMITIS [None]
  - PANCYTOPENIA [None]
  - FUNGAL ENDOCARDITIS [None]
